FAERS Safety Report 25844455 (Version 2)
Quarter: 2025Q4

REPORT INFORMATION
  Report Type: Report from Study
  Country: US (occurrence: US)
  Receive Date: 20250925
  Receipt Date: 20251001
  Transmission Date: 20260117
  Serious: No
  Sender: SANDOZ
  Company Number: US-SANDOZ-SDZ2025US067960

PATIENT
  Age: 14 Year
  Sex: Male

DRUGS (4)
  1. OMNITROPE [Suspect]
     Active Substance: SOMATROPIN
     Dosage: 2 MG, QD
     Route: 058
  2. OMNITROPE [Suspect]
     Active Substance: SOMATROPIN
     Dosage: 2 MG, QD
     Route: 058
  3. OMNITROPE [Suspect]
     Active Substance: SOMATROPIN
     Indication: Short stature
     Dosage: 2 MG, QD (10 MG / 1.5 ML)
     Route: 058
     Dates: start: 20250910
  4. OMNITROPE [Suspect]
     Active Substance: SOMATROPIN
     Indication: Short stature
     Dosage: 2 MG, QD (10 MG / 1.5 ML)
     Route: 058
     Dates: start: 20250910

REACTIONS (3)
  - Injection site haemorrhage [Unknown]
  - Exposure via skin contact [Unknown]
  - Needle issue [Unknown]

NARRATIVE: CASE EVENT DATE: 20250914
